FAERS Safety Report 8116506-8 (Version None)
Quarter: 2012Q1

REPORT INFORMATION
  Report Type: 
  Country: None (occurrence: None)
  Receive Date: 20120206
  Receipt Date: 20120127
  Transmission Date: 20120608
  Serious: Yes (Hospitalization)
  Sender: FDA-Public Use
  Company Number: US-BAYER-2011-072041

PATIENT
  Age: 26 Year
  Sex: Female
  Weight: 177 kg

DRUGS (2)
  1. YASMIN [Suspect]
     Indication: MENSTRUAL CYCLE MANAGEMENT
     Dosage: UNK
     Dates: start: 20070501, end: 20071001
  2. NAPROXEN (ALEVE) [Concomitant]
     Dosage: UNK UNK, PRN
     Route: 048

REACTIONS (6)
  - ANHEDONIA [None]
  - PULMONARY EMBOLISM [None]
  - INJURY [None]
  - ANXIETY [None]
  - PAIN [None]
  - CHEST PAIN [None]
